FAERS Safety Report 25268334 (Version 2)
Quarter: 2025Q3

REPORT INFORMATION
  Report Type: Report from Study
  Country: US (occurrence: US)
  Receive Date: 20250505
  Receipt Date: 20250809
  Transmission Date: 20251020
  Serious: Yes (Other)
  Sender: ALEXION PHARMACEUTICALS
  Company Number: US-AstraZeneca-CH-00858370A

PATIENT
  Sex: Female
  Weight: 55.338 kg

DRUGS (1)
  1. ACALABRUTINIB [Suspect]
     Active Substance: ACALABRUTINIB
     Indication: B-cell lymphoma
     Dosage: 100 MILLIGRAM, BID
     Dates: start: 202403

REACTIONS (3)
  - Wrist fracture [Unknown]
  - Feeling abnormal [Unknown]
  - Product dose omission in error [Unknown]
